FAERS Safety Report 18107274 (Version 1)
Quarter: 2020Q3

REPORT INFORMATION
  Report Type: Spontaneous
  Country: US (occurrence: US)
  Receive Date: 20200803
  Receipt Date: 20200803
  Transmission Date: 20201103
  Serious: No
  Sender: FDA-Public Use
  Company Number: None

PATIENT
  Age: 74 Year
  Sex: Male
  Weight: 70.31 kg

DRUGS (1)
  1. ODOMZO [Suspect]
     Active Substance: SONIDEGIB
     Indication: BASAL CELL CARCINOMA
     Dosage: 1 CAPSULE BY MOUTH DAILY ON EMPTY STOMACH AT LEAST 1 HOUR BEFORE OR 2 HOURS AFTER A MEAL
     Route: 048
     Dates: start: 201907

REACTIONS (1)
  - Bronchitis [None]
